FAERS Safety Report 4888147-7 (Version None)
Quarter: 2006Q1

REPORT INFORMATION
  Report Type: 
  Country: None (occurrence: None)
  Receive Date: 20060119
  Receipt Date: 20060106
  Transmission Date: 20060701
  Serious: Yes (Other)
  Sender: FDA-Public Use
  Company Number: 2006005821

PATIENT
  Sex: Female

DRUGS (10)
  1. CELEBREX [Suspect]
     Indication: OSTEOARTHRITIS
     Dosage: 400 MG (200 MG, 2 IN 1 D)
     Dates: start: 19990101
  2. MOTRIN [Suspect]
     Indication: OSTEOARTHRITIS
  3. ORUDIS [Suspect]
     Indication: ILL-DEFINED DISORDER
  4. NAPROSYN [Suspect]
     Indication: ILL-DEFINED DISORDER
  5. NEURONTIN [Concomitant]
  6. DARVOCET [Concomitant]
  7. ALPRAZOLAM [Concomitant]
  8. KLOR-CON [Concomitant]
  9. CLONIDINE [Concomitant]
  10. LISINOPRIL [Concomitant]

REACTIONS (12)
  - BODY HEIGHT DECREASED [None]
  - DEPRESSION [None]
  - DIFFICULTY IN WALKING [None]
  - DRUG INEFFECTIVE [None]
  - FOOT FRACTURE [None]
  - HELICOBACTER INFECTION [None]
  - KNEE ARTHROPLASTY [None]
  - MALAISE [None]
  - TENDON RUPTURE [None]
  - TENDONITIS [None]
  - ULCER [None]
  - WEIGHT INCREASED [None]
